FAERS Safety Report 18996508 (Version 1)
Quarter: 2021Q1

REPORT INFORMATION
  Report Type: Spontaneous
  Country: GB (occurrence: GB)
  Receive Date: 20210311
  Receipt Date: 20210311
  Transmission Date: 20210420
  Serious: Yes (Other)
  Sender: FDA-Public Use
  Company Number: GB-DEXPHARM-20210310

PATIENT
  Sex: Male

DRUGS (21)
  1. ALLOPURINOL. [Suspect]
     Active Substance: ALLOPURINOL
  2. AMITRIPTYLINE [Suspect]
     Active Substance: AMITRIPTYLINE
  3. CITALOPRAM [Suspect]
     Active Substance: CITALOPRAM HYDROBROMIDE
  4. PIROXICAM. [Suspect]
     Active Substance: PIROXICAM
  5. SILDENAFIL. [Suspect]
     Active Substance: SILDENAFIL
  6. TAMSULOSIN [Suspect]
     Active Substance: TAMSULOSIN
  7. ALENDRONIC ACID [Suspect]
     Active Substance: ALENDRONIC ACID
  8. PARACETAMOL [Suspect]
     Active Substance: ACETAMINOPHEN
     Dates: start: 20210223
  9. SIMVASTATIN. [Suspect]
     Active Substance: SIMVASTATIN
  10. BISOPROLOL [Suspect]
     Active Substance: BISOPROLOL
  11. FUROSEMIDE. [Suspect]
     Active Substance: FUROSEMIDE
  12. HYPROMELLOSE [Suspect]
     Active Substance: HYPROMELLOSES
     Dates: start: 20210223
  13. OMEPRAZOLE. [Suspect]
     Active Substance: OMEPRAZOLE
  14. ZOLPIDEM [Suspect]
     Active Substance: ZOLPIDEM TARTRATE
  15. ADCAL?D3 [Suspect]
     Active Substance: CALCIUM CARBONATE\CHOLECALCIFEROL
  16. RIVAROXABAN [Suspect]
     Active Substance: RIVAROXABAN
  17. TRAMADOL. [Suspect]
     Active Substance: TRAMADOL
     Dates: start: 20210223
  18. AMLODIPINE [Suspect]
     Active Substance: AMLODIPINE BESYLATE
  19. FOLIC ACID. [Suspect]
     Active Substance: FOLIC ACID
  20. PREGABALIN. [Suspect]
     Active Substance: PREGABALIN
  21. RAMIPRIL. [Suspect]
     Active Substance: RAMIPRIL
     Dates: start: 20210223

REACTIONS (1)
  - Pancytopenia [Unknown]
